FAERS Safety Report 18742801 (Version 1)
Quarter: 2021Q1

REPORT INFORMATION
  Report Type: Spontaneous
  Country: US (occurrence: US)
  Receive Date: 20210115
  Receipt Date: 20210115
  Transmission Date: 20210419
  Serious: Yes (Death, Other)
  Sender: FDA-Public Use
  Company Number: US-AMGEN-USASP2021002525

PATIENT
  Age: 72 Year
  Sex: Female

DRUGS (3)
  1. BEVACIZUMAB. [Suspect]
     Active Substance: BEVACIZUMAB
     Indication: SQUAMOUS CELL CARCINOMA OF THE CERVIX
     Dosage: 15 MILLIGRAM/KILOGRAM, Q3WK
     Route: 065
  2. CARBOPLATIN. [Concomitant]
     Active Substance: CARBOPLATIN
     Indication: SQUAMOUS CELL CARCINOMA OF THE CERVIX
     Dosage: UNK, AUC 6
  3. PACLITAXEL. [Concomitant]
     Active Substance: PACLITAXEL
     Indication: SQUAMOUS CELL CARCINOMA OF THE CERVIX
     Dosage: 175 MILLIGRAM/SQ. METER

REACTIONS (5)
  - Brain compression [Fatal]
  - Brain herniation [Unknown]
  - Metastases to central nervous system [Unknown]
  - Haemorrhage intracranial [Unknown]
  - Hydrocephalus [Unknown]
